FAERS Safety Report 6511460-4 (Version None)
Quarter: 2009Q4

REPORT INFORMATION
  Report Type: 
  Country: None (occurrence: None)
  Receive Date: 20091217
  Receipt Date: 20091203
  Transmission Date: 20100525
  Serious: Yes (Hospitalization, Other)
  Sender: FDA-Public Use
  Company Number: 2009-198554-NL

PATIENT
  Age: 31 Year
  Sex: Female
  Weight: 90.7194 kg

DRUGS (11)
  1. NUVARING [Suspect]
     Indication: CONTRACEPTION
     Dates: start: 20040101, end: 20080303
  2. ALLEGRA [Concomitant]
  3. GYNAZOLE [Concomitant]
  4. CLINDESSE [Concomitant]
  5. OXYCODONE HCL AND ACETAMINOPHEN [Concomitant]
  6. PROMETHAZINE [Concomitant]
  7. GLIMEPIRIDE [Concomitant]
  8. FEXOFENADINE [Concomitant]
  9. FLUTICASONE [Concomitant]
  10. XOPENEX [Concomitant]
  11. METRONIDAZOLE [Concomitant]

REACTIONS (13)
  - CONDITION AGGRAVATED [None]
  - DIABETES MELLITUS [None]
  - DIZZINESS [None]
  - DYSMENORRHOEA [None]
  - HAEMODYNAMIC INSTABILITY [None]
  - HYPERHIDROSIS [None]
  - LEFT VENTRICULAR HYPERTROPHY [None]
  - PALPITATIONS [None]
  - PULMONARY EMBOLISM [None]
  - SEASONAL ALLERGY [None]
  - STAPHYLOCOCCAL SEPSIS [None]
  - VOMITING [None]
  - WOUND SEPSIS [None]
